FAERS Safety Report 22293545 (Version 2)
Quarter: 2023Q2

REPORT INFORMATION
  Report Type: Spontaneous
  Country: US (occurrence: US)
  Receive Date: 20230508
  Receipt Date: 20230515
  Transmission Date: 20230722
  Serious: Yes (Hospitalization)
  Sender: FDA-Public Use
  Company Number: US-GLAXOSMITHKLINE-US2023063821

PATIENT

DRUGS (1)
  1. TRELEGY ELLIPTA [Suspect]
     Active Substance: FLUTICASONE FUROATE\UMECLIDINIUM BROMIDE\VILANTEROL TRIFENATATE
     Indication: Chronic obstructive pulmonary disease
     Dosage: UNK
     Dates: start: 2013

REACTIONS (5)
  - Hospitalisation [Unknown]
  - Rehabilitation therapy [Not Recovered/Not Resolved]
  - Scar [Unknown]
  - Dysphagia [Unknown]
  - Aphasia [Unknown]

NARRATIVE: CASE EVENT DATE: 20230401
